FAERS Safety Report 6221417-9 (Version None)
Quarter: 2009Q2

REPORT INFORMATION
  Report Type: 
  Country: None (occurrence: None)
  Receive Date: 20090610
  Receipt Date: 20090527
  Transmission Date: 20091009
  Serious: Yes (Hospitalization)
  Sender: FDA-Public Use
  Company Number: ES-ELI_LILLY_AND_COMPANY-ES200905005779

PATIENT
  Age: 68 Year
  Sex: Female

DRUGS (5)
  1. FORTEO [Suspect]
     Indication: OSTEOPOROSIS
     Dosage: 20 UG, UNK
     Route: 058
     Dates: start: 20081001
  2. CARDURA [Concomitant]
     Indication: HYPERTENSION
  3. LIBRADIN [Concomitant]
     Indication: HYPERTENSION
  4. PRETERAX [Concomitant]
     Indication: HYPERTENSION
  5. EMCOR [Concomitant]
     Indication: HYPERTENSION

REACTIONS (3)
  - ASTHENIA [None]
  - BLOOD PRESSURE INCREASED [None]
  - EPISTAXIS [None]
